FAERS Safety Report 13709999 (Version 2)
Quarter: 2017Q4

REPORT INFORMATION
  Report Type: Spontaneous
  Country: US (occurrence: US)
  Receive Date: 20170703
  Receipt Date: 20171024
  Transmission Date: 20180320
  Serious: Yes (Other)
  Sender: FDA-Public Use
  Company Number: US-SUN PHARMACEUTICAL INDUSTRIES LTD-2017US-144439

PATIENT
  Age: 63 Year
  Sex: Female

DRUGS (2)
  1. HYDROCORTISONE/PRAMOXINE [Suspect]
     Active Substance: HYDROCORTISONE\PRAMOXINE
     Indication: COLITIS ULCERATIVE
     Route: 054
  2. 6-MP [Suspect]
     Active Substance: MERCAPTOPURINE
     Indication: COLITIS ULCERATIVE
     Dosage: UNK
     Route: 065
     Dates: end: 201408

REACTIONS (1)
  - Cervical dysplasia [Unknown]
